FAERS Safety Report 9173193 (Version 1)
Quarter: 2013Q1

REPORT INFORMATION
  Report Type: Report from Study
  Country: MX (occurrence: MX)
  Receive Date: 20130320
  Receipt Date: 20130320
  Transmission Date: 20140127
  Serious: Yes (Hospitalization)
  Sender: FDA-Public Use
  Company Number: MX-JNJFOC-20110411219

PATIENT
  Age: 60 Year
  Sex: Female
  Weight: 61.7 kg

DRUGS (19)
  1. GOLIMUMAB [Suspect]
     Indication: RHEUMATOID ARTHRITIS
     Route: 042
     Dates: start: 20100701
  2. GOLIMUMAB [Suspect]
     Indication: RHEUMATOID ARTHRITIS
     Route: 042
     Dates: start: 20110314
  3. INDOMETHACIN [Concomitant]
     Indication: RHEUMATOID ARTHRITIS
     Route: 048
     Dates: start: 1995
  4. PARACETAMOL [Concomitant]
     Indication: RHEUMATOID ARTHRITIS
     Route: 048
     Dates: start: 2004
  5. FOLIC ACID [Concomitant]
     Indication: RHEUMATOID ARTHRITIS
     Route: 048
     Dates: start: 1995
  6. CAPTOPRIL [Concomitant]
     Indication: HYPERTENSION
     Route: 048
     Dates: start: 2000
  7. ISONIAZID [Concomitant]
     Indication: ANTIBIOTIC PROPHYLAXIS
     Route: 048
     Dates: start: 20100630
  8. PYRIDOXINE [Concomitant]
     Indication: NEUROPATHY PERIPHERAL
     Route: 047
     Dates: start: 20100630
  9. PYRIDOXINE [Concomitant]
     Indication: PROPHYLAXIS
     Route: 047
     Dates: start: 20100630
  10. ALENDRONATE [Concomitant]
     Indication: OSTEOPOROSIS
     Route: 048
     Dates: start: 20100826
  11. CALCIUM [Concomitant]
     Indication: OSTEOPOROSIS
     Route: 048
     Dates: start: 20100826
  12. VITAMIN D [Concomitant]
     Indication: OSTEOPOROSIS
     Route: 048
  13. OMEPRAZOLE [Concomitant]
     Indication: GASTROINTESTINAL DISORDER THERAPY
     Route: 048
     Dates: start: 20100826
  14. INSULIN [Concomitant]
     Indication: DIABETES MELLITUS
     Dosage: 33 UNITS
     Route: 058
     Dates: start: 20101005
  15. GABAPENTIN [Concomitant]
     Indication: RADICULOPATHY
     Route: 048
     Dates: start: 20100920
  16. SENNOSIDE [Concomitant]
     Indication: CONSTIPATION
     Route: 048
     Dates: start: 20101118
  17. HYOSCINE BUTYLBROMIDE [Concomitant]
     Route: 048
     Dates: start: 20110417, end: 20110419
  18. TRIMETHOPRIM [Concomitant]
     Route: 048
     Dates: start: 20110417, end: 20110419
  19. SULFAMETHOXAZOLE [Concomitant]
     Route: 048
     Dates: start: 20110417, end: 20110419

REACTIONS (1)
  - Urinary tract infection [Recovered/Resolved]
